FAERS Safety Report 10015863 (Version 3)
Quarter: 2014Q2

REPORT INFORMATION
  Report Type: Spontaneous
  Country: US (occurrence: US)
  Receive Date: 20140317
  Receipt Date: 20140505
  Transmission Date: 20141212
  Serious: Yes (Other)
  Sender: FDA-Public Use
  Company Number: US-GLAXOSMITHKLINE-A1065183A

PATIENT
  Age: 77 Year
  Sex: Male
  Weight: 88.2 kg

DRUGS (1)
  1. AVODART [Suspect]
     Indication: BENIGN PROSTATIC HYPERPLASIA
     Dosage: .5MG PER DAY
     Route: 048
     Dates: start: 20090204

REACTIONS (2)
  - Prostate cancer [Unknown]
  - Prostatomegaly [Unknown]
